FAERS Safety Report 19590684 (Version 1)
Quarter: 2021Q3

REPORT INFORMATION
  Report Type: Spontaneous
  Country: US (occurrence: US)
  Receive Date: 20210721
  Receipt Date: 20210721
  Transmission Date: 20211014
  Serious: No
  Sender: FDA-Public Use
  Company Number: US-SA-2021SA232275

PATIENT
  Age: 85 Year
  Sex: Male

DRUGS (1)
  1. LANTUS SOLOSTAR [Suspect]
     Active Substance: INSULIN GLARGINE
     Indication: TYPE 2 DIABETES MELLITUS
     Dosage: 10 IU? IN MORNING AND 15 IU? IN NIGHT, BID
     Route: 065
     Dates: start: 202006

REACTIONS (3)
  - Discomfort [Unknown]
  - Product storage error [Unknown]
  - Inappropriate schedule of product administration [Unknown]
